FAERS Safety Report 24064076 (Version 1)
Quarter: 2024Q3

REPORT INFORMATION
  Report Type: Spontaneous
  Country: RU (occurrence: RU)
  Receive Date: 20240709
  Receipt Date: 20240709
  Transmission Date: 20241016
  Serious: Yes (Other)
  Sender: RANBAXY
  Company Number: RU-SUN PHARMACEUTICAL INDUSTRIES LTD-2024R1-455123

PATIENT
  Age: 66 Year

DRUGS (3)
  1. METHIMAZOLE [Suspect]
     Active Substance: METHIMAZOLE
     Indication: Arrhythmia
     Dosage: 10 MILLIGRAM, QD
     Route: 065
  2. APIXABAN [Suspect]
     Active Substance: APIXABAN
     Indication: Arrhythmia
     Dosage: 5 MILLIGRAM, BID
     Route: 065
  3. ATORVASTATIN [Suspect]
     Active Substance: ATORVASTATIN
     Indication: Arrhythmia
     Dosage: 20 MILLIGRAM, QD
     Route: 065

REACTIONS (2)
  - Hypothyroidism [Unknown]
  - Autoimmune thyroiditis [Unknown]
